FAERS Safety Report 13860462 (Version 1)
Quarter: 2017Q3

REPORT INFORMATION
  Report Type: Spontaneous
  Country: FR (occurrence: FR)
  Receive Date: 20170811
  Receipt Date: 20170811
  Transmission Date: 20171127
  Serious: Yes (Hospitalization, Other)
  Sender: FDA-Public Use
  Company Number: FR-009507513-1708FRA001214

PATIENT
  Age: 67 Year
  Sex: Male

DRUGS (5)
  1. METHOTREXATE. [Suspect]
     Active Substance: METHOTREXATE
     Indication: PSORIASIS
     Dosage: 1.4286 MG(10 MG, 1 IN 1 WEEK)
     Route: 048
     Dates: start: 20170628
  2. DERMATOLOGIC (UNSPECIFIED) [Concomitant]
     Active Substance: UNSPECIFIED INGREDIENT
     Indication: PSORIASIS
  3. INFLECTRA [Suspect]
     Active Substance: INFLIXIMAB-DYYB
     Indication: PSORIASIS
     Dosage: 365 MG, QD (1 IN 1 DAY)
     Route: 042
     Dates: start: 20170628
  4. DIPROSONE [Suspect]
     Active Substance: BETAMETHASONE DIPROPIONATE
     Indication: PSORIASIS
     Dosage: 1 DF, QD (1 IN 1 DAY)
     Route: 003
     Dates: start: 20170628
  5. LOCAPRED [Suspect]
     Active Substance: DESONIDE
     Indication: PSORIASIS
     Dosage: 1 DF, QD (1 IN 1 DAY)
     Route: 003
     Dates: start: 20170628

REACTIONS (2)
  - Pyrexia [Recovered/Resolved]
  - Streptococcal bacteraemia [Recovered/Resolved]

NARRATIVE: CASE EVENT DATE: 201707
